FAERS Safety Report 4875660-1 (Version None)
Quarter: 2006Q1

REPORT INFORMATION
  Report Type: 
  Country: None (occurrence: None)
  Receive Date: 20060105
  Receipt Date: 20051220
  Transmission Date: 20060701
  Serious: Yes (Other)
  Sender: FDA-Public Use
  Company Number: 230007M05GRC

PATIENT
  Age: 34 Year
  Sex: Female
  Weight: 79 kg

DRUGS (2)
  1. REBIF [Suspect]
     Indication: MULTIPLE SCLEROSIS
     Dosage: 44, 3 IN 1 WEEKS
     Dates: start: 20040801, end: 20050901
  2. FLUOXETINE HYDROCHLORIDE [Concomitant]

REACTIONS (2)
  - CELLULITIS [None]
  - SKIN NECROSIS [None]
